FAERS Safety Report 25249499 (Version 2)
Quarter: 2025Q2

REPORT INFORMATION
  Report Type: Report from Study
  Country: US (occurrence: US)
  Receive Date: 20250429
  Receipt Date: 20250516
  Transmission Date: 20250717
  Serious: Yes (Hospitalization, Other)
  Sender: ABBVIE
  Company Number: US-ABBVIE-6248454

PATIENT
  Sex: Female

DRUGS (1)
  1. SKYRIZI [Suspect]
     Active Substance: RISANKIZUMAB-RZAA
     Indication: Psoriasis
     Route: 058
     Dates: start: 202411

REACTIONS (6)
  - Liver function test abnormal [Not Recovered/Not Resolved]
  - Pruritus [Unknown]
  - Hepatic cirrhosis [Unknown]
  - Hepatic cancer [Unknown]
  - Renal cancer [Unknown]
  - Bone cancer [Unknown]
